FAERS Safety Report 8488471-5 (Version None)
Quarter: 2012Q3

REPORT INFORMATION
  Report Type: 
  Country: None (occurrence: None)
  Receive Date: 20120705
  Receipt Date: 20120621
  Transmission Date: 20120928
  Serious: Yes (Hospitalization)
  Sender: FDA-Public Use
  Company Number: JP-UCBSA-057127

PATIENT
  Age: 13 Year
  Sex: Male
  Weight: 50.6 kg

DRUGS (4)
  1. DEPAKINE -R [Concomitant]
     Indication: EPILEPSY
     Dosage: 600 MG
     Route: 048
     Dates: start: 20120308, end: 20120412
  2. DIAPP [Concomitant]
     Indication: EPILEPSY
     Route: 054
     Dates: start: 20120412
  3. KEPPRA [Suspect]
     Indication: EPILEPSY
     Route: 048
     Dates: start: 20120412, end: 20120413
  4. ACETAMINOPHEN [Concomitant]
     Indication: HEADACHE
     Route: 048
     Dates: start: 20120412

REACTIONS (1)
  - CONVERSION DISORDER [None]
